FAERS Safety Report 8473323-7 (Version None)
Quarter: 2012Q2

REPORT INFORMATION
  Report Type: 
  Country: None (occurrence: None)
  Receive Date: 20120628
  Receipt Date: 20120618
  Transmission Date: 20120825
  Serious: Yes (Hospitalization)
  Sender: FDA-Public Use
  Company Number: BR-BRISTOL-MYERS SQUIBB COMPANY-16699225

PATIENT
  Age: 63 Year
  Sex: Male
  Weight: 90 kg

DRUGS (5)
  1. METFORMIN HCL [Concomitant]
  2. GLICLAZIDE [Concomitant]
  3. ONGLYZA [Suspect]
     Indication: DIABETES MELLITUS
     Dosage: INITIATED MORE THAN 1 YEAR AGO ,INTERRUPTED AND RESTARTED 19JUN12
     Route: 048
  4. LOSARTAN POTASSIUM [Concomitant]
  5. AMLODIPINE [Concomitant]

REACTIONS (3)
  - ROAD TRAFFIC ACCIDENT [None]
  - QUADRIPLEGIA [None]
  - UPPER LIMB FRACTURE [None]
